FAERS Safety Report 12293789 (Version 37)
Quarter: 2023Q2

REPORT INFORMATION
  Report Type: Other
  Country: CA (occurrence: None)
  Receive Date: 20160421
  Receipt Date: 20230615
  Transmission Date: 20230722
  Serious: Yes (Other)
  Sender: FDA-Public Use
  Company Number: CA-ROCHE-1591315

PATIENT
  Age: 66 Year
  Sex: Female
  Weight: 130 kg

DRUGS (9)
  1. ACTEMRA [Suspect]
     Active Substance: TOCILIZUMAB
     Indication: Rheumatoid arthritis
     Route: 042
     Dates: start: 20150413, end: 20160825
  2. ACTEMRA [Suspect]
     Active Substance: TOCILIZUMAB
     Route: 042
     Dates: start: 20161104
  3. ACTEMRA [Suspect]
     Active Substance: TOCILIZUMAB
     Indication: Rheumatoid arthritis
     Dosage: NEXT DOSE RECEIVED ON 12/MAY/2020
     Route: 058
     Dates: start: 20161104, end: 20230321
  4. CORTISONE [Suspect]
     Active Substance: CORTISONE
     Indication: Product used for unknown indication
     Route: 065
     Dates: start: 201606
  5. METHOTREXATE [Concomitant]
     Active Substance: METHOTREXATE
  6. FOLIC ACID [Concomitant]
     Active Substance: FOLIC ACID
  7. TELMISARTAN [Concomitant]
     Active Substance: TELMISARTAN
  8. HERBALS\TURMERIC [Concomitant]
     Active Substance: HERBALS\TURMERIC
     Dosage: PILLS
  9. CORTISONE [Concomitant]
     Active Substance: CORTISONE

REACTIONS (36)
  - Lower respiratory tract congestion [Not Recovered/Not Resolved]
  - Umbilical hernia [Not Recovered/Not Resolved]
  - Arthralgia [Recovering/Resolving]
  - Weight increased [Recovering/Resolving]
  - Hypertension [Unknown]
  - Peripheral swelling [Recovering/Resolving]
  - Blood pressure diastolic decreased [Unknown]
  - Respiratory rate increased [Unknown]
  - Headache [Not Recovered/Not Resolved]
  - Injection site bruising [Unknown]
  - Body temperature decreased [Unknown]
  - Blood pressure decreased [Unknown]
  - Poor venous access [Unknown]
  - Dehydration [Unknown]
  - Blood pressure diastolic decreased [Unknown]
  - Oxygen saturation decreased [Unknown]
  - Viral infection [Unknown]
  - Oropharyngeal pain [Not Recovered/Not Resolved]
  - Aphonia [Unknown]
  - Ear pain [Not Recovered/Not Resolved]
  - Arthralgia [Not Recovered/Not Resolved]
  - Joint swelling [Not Recovered/Not Resolved]
  - Arthralgia [Not Recovered/Not Resolved]
  - Arthralgia [Unknown]
  - Drug ineffective [Unknown]
  - Joint swelling [Unknown]
  - Laryngitis [Not Recovered/Not Resolved]
  - Cough [Unknown]
  - Osteoarthritis [Recovering/Resolving]
  - Localised infection [Unknown]
  - Pruritus [Not Recovered/Not Resolved]
  - Movement disorder [Not Recovered/Not Resolved]
  - Blood pressure diastolic decreased [Unknown]
  - Arthropathy [Unknown]
  - Incision site impaired healing [Not Recovered/Not Resolved]
  - Wound secretion [Not Recovered/Not Resolved]

NARRATIVE: CASE EVENT DATE: 20150608
